FAERS Safety Report 5842882-2 (Version None)
Quarter: 2008Q3

REPORT INFORMATION
  Report Type: 
  Country: None (occurrence: None)
  Receive Date: 20080731
  Receipt Date: 20080512
  Transmission Date: 20090109
  Serious: No
  Sender: FDA-Public Use
  Company Number: US200801004623

PATIENT
  Age: 61 Year
  Sex: Female
  Weight: 105.7 kg

DRUGS (16)
  1. BYETTA [Suspect]
     Indication: TYPE 2 DIABETES MELLITUS
     Dosage: 5 UG, 2/D, SUBCUTANEOUS ; 10 UG, 2/D, SUBCUTANEOUS
     Route: 058
     Dates: start: 20050101, end: 20050101
  2. BYETTA [Suspect]
     Indication: TYPE 2 DIABETES MELLITUS
     Dosage: 5 UG, 2/D, SUBCUTANEOUS ; 10 UG, 2/D, SUBCUTANEOUS
     Route: 058
     Dates: start: 20050101
  3. GLYBURIDE [Concomitant]
  4. NEURONTIN [Concomitant]
  5. RELAFEN [Concomitant]
  6. LASIX [Concomitant]
  7. CRESTOR [Concomitant]
  8. PROTONIX [Concomitant]
  9. POTASSIUM CHLORIDE [Concomitant]
  10. DIOVAN (HYDROCHLOROTHIAZIDE, VALSARTAN) [Concomitant]
  11. SYNTHROID [Concomitant]
  12. PLAVIX [Concomitant]
  13. TOPROL-XL [Concomitant]
  14. ASPIRIN [Concomitant]
  15. FLAXSEED OIL (LINUM USITATISSIMUM SEED OIL) [Concomitant]
  16. EXENATIDE PEN, DISPOSABLE DEVICE (EXENATIDE PEN)) PEN, DISPOSABLE [Concomitant]

REACTIONS (14)
  - AGITATION [None]
  - ANXIETY [None]
  - CARPAL TUNNEL SYNDROME [None]
  - FIBROMYALGIA [None]
  - INJECTION SITE NERVE DAMAGE [None]
  - INJECTION SITE PRURITUS [None]
  - MEMORY IMPAIRMENT [None]
  - NEUROPATHY PERIPHERAL [None]
  - POLYARTHRITIS [None]
  - THINKING ABNORMAL [None]
  - TREMOR [None]
  - TRIGGER FINGER [None]
  - URTICARIA [None]
  - WEIGHT DECREASED [None]
